FAERS Safety Report 24539044 (Version 1)
Quarter: 2024Q4

REPORT INFORMATION
  Report Type: Spontaneous
  Country: CA (occurrence: CA)
  Receive Date: 20241023
  Receipt Date: 20241023
  Transmission Date: 20250115
  Serious: Yes (Hospitalization)
  Sender: AMGEN
  Company Number: CA-AMGEN-CANSP2024207676

PATIENT
  Age: 63 Year
  Sex: Female

DRUGS (1)
  1. KYPROLIS [Suspect]
     Active Substance: CARFILZOMIB
     Indication: Product used for unknown indication
     Dosage: 70 MILLIGRAM/SQ. METER, CYCLICAL
     Route: 040

REACTIONS (6)
  - Aphasia [Recovering/Resolving]
  - Blood pressure systolic increased [Recovering/Resolving]
  - Central nervous system lesion [Recovering/Resolving]
  - Confusional state [Recovering/Resolving]
  - Unresponsive to stimuli [Recovering/Resolving]
  - Posterior reversible encephalopathy syndrome [Recovering/Resolving]
